FAERS Safety Report 8989706 (Version 2)
Quarter: 2013Q1

REPORT INFORMATION
  Report Type: Spontaneous
  Country: JP (occurrence: JP)
  Receive Date: 20121228
  Receipt Date: 20130129
  Transmission Date: 20140127
  Serious: Yes (Other)
  Sender: FDA-Public Use
  Company Number: JP-ASTRAZENECA-2012SE95973

PATIENT
  Age: 33 Year
  Sex: Male
  Weight: 100 kg

DRUGS (5)
  1. MEROPEN [Suspect]
     Indication: POST PROCEDURAL INFECTION
     Route: 042
  2. MEROPEN [Suspect]
     Indication: POST PROCEDURAL INFECTION
     Route: 042
     Dates: start: 20121203, end: 20121210
  3. VANCOMYCIN HYDROCHLORIDE [Suspect]
     Indication: POST PROCEDURAL INFECTION
     Route: 065
     Dates: start: 20121203, end: 20121209
  4. MAGLAX [Concomitant]
     Indication: CONSTIPATION
     Route: 048
     Dates: start: 20121129
  5. EQUA [Concomitant]
     Indication: DIABETES MELLITUS
     Route: 048
     Dates: start: 20121106

REACTIONS (1)
  - White blood cell count decreased [Recovered/Resolved]
